FAERS Safety Report 24993698 (Version 1)
Quarter: 2025Q1

REPORT INFORMATION
  Report Type: Spontaneous
  Country: JP (occurrence: JP)
  Receive Date: 20250221
  Receipt Date: 20250221
  Transmission Date: 20250409
  Serious: Yes (Other)
  Sender: GLAXOSMITHKLINE
  Company Number: JP-GSK-JP2025JPN020218

PATIENT

DRUGS (1)
  1. VALTREX [Suspect]
     Active Substance: VALACYCLOVIR HYDROCHLORIDE
     Indication: Herpes zoster
     Dosage: 1000 MG, TID

REACTIONS (6)
  - Toxic encephalopathy [Unknown]
  - Acute kidney injury [Recovering/Resolving]
  - Meningitis viral [Unknown]
  - Nephropathy [Unknown]
  - Inflammation [Unknown]
  - Prescribed overdose [Unknown]
